FAERS Safety Report 16848660 (Version 1)
Quarter: 2019Q3

REPORT INFORMATION
  Report Type: Spontaneous
  Country: US (occurrence: US)
  Receive Date: 20190925
  Receipt Date: 20190925
  Transmission Date: 20191005
  Serious: Yes (Other)
  Sender: FDA-Public Use
  Company Number: US-ASTRAZENECA-2019SF33389

PATIENT
  Sex: Male

DRUGS (1)
  1. CRESTOR [Suspect]
     Active Substance: ROSUVASTATIN CALCIUM
     Indication: BLOOD CHOLESTEROL INCREASED
     Dosage: UNKNOWN
     Route: 048

REACTIONS (6)
  - Blood cholesterol increased [Unknown]
  - Dizziness [Recovered/Resolved]
  - Cerebrovascular accident [Unknown]
  - Sleep disorder [Unknown]
  - Balance disorder [Unknown]
  - Drug hypersensitivity [Unknown]
